FAERS Safety Report 4688940-X (Version None)
Quarter: 2005Q2

REPORT INFORMATION
  Report Type: 
  Country: None (occurrence: None)
  Receive Date: 20050613
  Receipt Date: 20050602
  Transmission Date: 20051028
  Serious: Yes (Death)
  Sender: FDA-Public Use
  Company Number: FR-ROCHE-406563

PATIENT
  Age: 25 Year
  Sex: Male

DRUGS (7)
  1. RIVOTRIL [Suspect]
     Indication: DRUG USE FOR UNKNOWN INDICATION
     Route: 048
     Dates: start: 20040528, end: 20050415
  2. LOXAPAC [Suspect]
     Indication: DRUG USE FOR UNKNOWN INDICATION
     Route: 030
     Dates: start: 20041102
  3. LOXAPAC [Suspect]
     Route: 048
     Dates: start: 20030418, end: 20050415
  4. PARKINANE [Suspect]
     Indication: DRUG USE FOR UNKNOWN INDICATION
     Route: 048
     Dates: start: 20030414, end: 20050415
  5. ZYPREXA [Suspect]
     Indication: DRUG USE FOR UNKNOWN INDICATION
     Route: 048
     Dates: start: 20041104, end: 20050415
  6. TEGRETOL [Suspect]
     Indication: DRUG USE FOR UNKNOWN INDICATION
     Route: 048
     Dates: start: 20050119, end: 20050415
  7. THERALENE [Concomitant]
     Dates: start: 20041106

REACTIONS (6)
  - ACUTE RESPIRATORY DISTRESS SYNDROME [None]
  - DEHYDRATION [None]
  - DIABETIC COMA [None]
  - METABOLIC ACIDOSIS [None]
  - NERVOUS SYSTEM DISORDER [None]
  - RENAL FAILURE [None]
